FAERS Safety Report 11343569 (Version 1)
Quarter: 2015Q3

REPORT INFORMATION
  Report Type: Spontaneous
  Country: US (occurrence: None)
  Receive Date: 20150804
  Receipt Date: 20150804
  Transmission Date: 20151125
  Serious: No
  Sender: FDA-Public Use
  Company Number: None

PATIENT
  Age: 48 Year
  Sex: Female
  Weight: 93 kg

DRUGS (8)
  1. DICYCLOMINE [Suspect]
     Active Substance: DICYCLOMINE HYDROCHLORIDE
     Indication: ABDOMINAL PAIN
     Route: 042
  2. FAMOTIDINE (PEPCID) [Concomitant]
  3. PROMETHAZINE (PHENERGAN) [Concomitant]
  4. TRAMAL (ULTRAM) [Concomitant]
  5. DICYCLOMINE [Suspect]
     Active Substance: DICYCLOMINE HYDROCHLORIDE
     Indication: NAUSEA
     Route: 042
  6. MORPHINE [Concomitant]
     Active Substance: MORPHINE
  7. ZOFRAN [Concomitant]
     Active Substance: ONDANSETRON HYDROCHLORIDE
  8. METOCLOPRAMIDE (REGLAN) [Concomitant]
     Active Substance: METOCLOPRAMIDE HYDROCHLORIDE

REACTIONS (2)
  - Incorrect route of drug administration [None]
  - Vomiting [None]

NARRATIVE: CASE EVENT DATE: 20150731
